FAERS Safety Report 19658661 (Version 1)
Quarter: 2021Q3

REPORT INFORMATION
  Report Type: Other
  Country: SG (occurrence: SG)
  Receive Date: 20210805
  Receipt Date: 20210805
  Transmission Date: 20211014
  Serious: Yes (Death, Hospitalization, Other)
  Sender: FDA-Public Use
  Company Number: SG-UMEDICA-000121

PATIENT
  Age: 27 Year
  Sex: Male

DRUGS (6)
  1. FLUOXETINE [Concomitant]
     Active Substance: FLUOXETINE HYDROCHLORIDE
     Indication: AUTISM SPECTRUM DISORDER
     Dosage: 40 MG OM (EVERY MORNING)
  2. VALPROIC ACID. [Concomitant]
     Active Substance: VALPROIC ACID
     Indication: AUTISM SPECTRUM DISORDER
     Dosage: 750 MG ON (EVERY NIGHT)
  3. CLONAZEPAM. [Concomitant]
     Active Substance: CLONAZEPAM
     Indication: AUTISM SPECTRUM DISORDER
     Dosage: 1 MG TDS (THREE TIMES DAILY)
  4. ZUCLOPENTHIXOL [Suspect]
     Active Substance: ZUCLOPENTHIXOL
     Indication: PRODUCT USED FOR UNKNOWN INDICATION
  5. RISPERIDONE. [Concomitant]
     Active Substance: RISPERIDONE
     Indication: AUTISM SPECTRUM DISORDER
     Dosage: 2 MG BD
  6. CARBAMAZEPINE. [Suspect]
     Active Substance: CARBAMAZEPINE
     Indication: AGGRESSION

REACTIONS (3)
  - Cardiac arrest [Fatal]
  - Toxic epidermal necrolysis [Unknown]
  - Respiratory failure [Unknown]
